FAERS Safety Report 10983450 (Version 6)
Quarter: 2016Q3

REPORT INFORMATION
  Report Type: Spontaneous
  Country: US (occurrence: US)
  Receive Date: 20150403
  Receipt Date: 20160721
  Transmission Date: 20161109
  Serious: Yes (Other)
  Sender: FDA-Public Use
  Company Number: US-009507513-98031967

PATIENT
  Sex: Male
  Weight: 131.52 kg

DRUGS (3)
  1. PROPECIA [Suspect]
     Active Substance: FINASTERIDE
     Indication: ANDROGENETIC ALOPECIA
  2. TETRACYCLINE [Concomitant]
     Active Substance: TETRACYCLINE
     Route: 065
     Dates: end: 1998
  3. PROPECIA [Suspect]
     Active Substance: FINASTERIDE
     Indication: ALOPECIA
     Dosage: 1 MG, UNK
     Route: 048
     Dates: start: 19970820, end: 20101021

REACTIONS (13)
  - Hernia repair [Unknown]
  - Arthralgia [Recovered/Resolved]
  - Hypertension [Unknown]
  - Sexual dysfunction [Not Recovered/Not Resolved]
  - Gynaecomastia [Not Recovered/Not Resolved]
  - Ejaculation disorder [Unknown]
  - Erectile dysfunction [Not Recovered/Not Resolved]
  - Myalgia [Recovered/Resolved]
  - Depression [Not Recovered/Not Resolved]
  - Benign prostatic hyperplasia [Recovered/Resolved]
  - Jaw operation [Unknown]
  - Spermatocele [Unknown]
  - Anxiety [Not Recovered/Not Resolved]

NARRATIVE: CASE EVENT DATE: 19980319
